FAERS Safety Report 25251547 (Version 5)
Quarter: 2025Q4

REPORT INFORMATION
  Report Type: Spontaneous
  Country: US (occurrence: US)
  Receive Date: 20250429
  Receipt Date: 20251118
  Transmission Date: 20260117
  Serious: No
  Sender: TRAVERE THERAPEUTICS
  Company Number: US-TRAVERE-2025TVT00410

PATIENT
  Age: 68 Year
  Sex: Female

DRUGS (3)
  1. FILSPARI [Suspect]
     Active Substance: SPARSENTAN
     Indication: IgA nephropathy
     Route: 048
     Dates: start: 20250307
  2. FILSPARI [Suspect]
     Active Substance: SPARSENTAN
     Dosage: 200MG TABLETS TAKE 2 TABS DAILY
     Route: 048
  3. FILSPARI [Suspect]
     Active Substance: SPARSENTAN
     Route: 048

REACTIONS (4)
  - Nasopharyngitis [Unknown]
  - Abdominal pain [None]
  - Diarrhoea [None]
  - Bronchitis [Recovering/Resolving]
